FAERS Safety Report 6574842-0 (Version None)
Quarter: 2010Q1

REPORT INFORMATION
  Report Type: 
  Country: None (occurrence: None)
  Receive Date: 20100209
  Receipt Date: 20100201
  Transmission Date: 20100710
  Serious: Yes (Death, Hospitalization, Other)
  Sender: FDA-Public Use
  Company Number: PHHO2010US01598

PATIENT
  Sex: Female
  Weight: 64.6 kg

DRUGS (13)
  1. AFINITOR [Suspect]
     Indication: METASTATIC RENAL CELL CARCINOMA
     Dosage: 10 MG, DAILY
     Route: 048
     Dates: start: 20091112, end: 20100119
  2. SORAFENIB [Suspect]
     Indication: METASTATIC RENAL CELL CARCINOMA
     Dosage: 200 MG, BID
     Route: 048
     Dates: start: 20091112, end: 20100119
  3. SYNTHROID [Concomitant]
  4. METOPROLOL TARTRATE [Concomitant]
  5. HYDROCORTISONE [Concomitant]
  6. FLUDROCORTISONE [Concomitant]
  7. TYLENOL-500 [Concomitant]
  8. SENNA [Concomitant]
  9. DOCUSATE [Concomitant]
  10. POTASSIUM PHOSPHATES [Concomitant]
  11. LASIX [Concomitant]
  12. ONDANSETRON [Concomitant]
  13. ZIACAINE [Concomitant]

REACTIONS (7)
  - COUGH [None]
  - DYSPNOEA [None]
  - FATIGUE [None]
  - ORGANISING PNEUMONIA [None]
  - PULMONARY HYPERTENSION [None]
  - PULMONARY OEDEMA [None]
  - SINUS TACHYCARDIA [None]
